FAERS Safety Report 20448341 (Version 1)
Quarter: 2022Q1

REPORT INFORMATION
  Report Type: Report from Study
  Country: EG (occurrence: EG)
  Receive Date: 20220209
  Receipt Date: 20220209
  Transmission Date: 20220423
  Serious: Yes (Other)
  Sender: FDA-Public Use
  Company Number: EG-NOVARTISPH-NVSC2022EG017347

PATIENT
  Age: 50 Year
  Sex: Female

DRUGS (6)
  1. KISQALI [Suspect]
     Active Substance: RIBOCICLIB
     Indication: Breast cancer metastatic
     Dosage: UNK (FROM FEB-2020 TILL THE BEGINNING OF 2021 : 3 TABLETS OF KISQALI)
     Route: 065
  2. KISQALI [Suspect]
     Active Substance: RIBOCICLIB
     Indication: Hepatic neoplasm
     Dosage: UNK (BEGINNING OF 2021: 2 TABS PER DAY)
     Route: 065
  3. KISQALI [Suspect]
     Active Substance: RIBOCICLIB
     Dosage: UNK (AT THE END OF 2021: 1 TAB PER DAY)
     Route: 065
  4. KISQALI [Suspect]
     Active Substance: RIBOCICLIB
     Dosage: 200 MG, QD
     Route: 065
     Dates: start: 20200208
  5. FEMARA [Concomitant]
     Active Substance: LETROZOLE
     Indication: Hepatic neoplasm
     Dosage: UNK (1- 1 TABLET PER DAY)
     Route: 065
     Dates: start: 202002
  6. ZOLADEX [Concomitant]
     Active Substance: GOSERELIN ACETATE
     Indication: Metastatic neoplasm
     Dosage: UNK UNK, QMO
     Route: 065
     Dates: start: 202002

REACTIONS (9)
  - Generalised oedema [Not Recovered/Not Resolved]
  - Malignant neoplasm progression [Not Recovered/Not Resolved]
  - Breast cancer metastatic [Not Recovered/Not Resolved]
  - Liver function test abnormal [Recovering/Resolving]
  - Decreased immune responsiveness [Unknown]
  - Myalgia [Unknown]
  - Arthralgia [Unknown]
  - White blood cell count decreased [Recovering/Resolving]
  - Alopecia [Recovering/Resolving]

NARRATIVE: CASE EVENT DATE: 20200201
